FAERS Safety Report 8068069-3 (Version None)
Quarter: 2012Q1

REPORT INFORMATION
  Report Type: 
  Country: None (occurrence: None)
  Receive Date: 20120124
  Receipt Date: 20110916
  Transmission Date: 20120608
  Serious: No
  Sender: FDA-Public Use
  Company Number: US-AMGEN-USASP2011048038

PATIENT
  Age: 63 Year
  Sex: Female

DRUGS (8)
  1. MULTI-VITAMIN [Concomitant]
  2. PLAQUENIL [Concomitant]
  3. PRILOSEC [Concomitant]
  4. LISINOPRIL [Concomitant]
  5. FISH OIL [Concomitant]
  6. PROLIA [Suspect]
     Indication: OSTEOPOROSIS POSTMENOPAUSAL
     Dosage: 60 MG, Q6MO
     Dates: start: 20110401
  7. ZICAM [Concomitant]
  8. CALCIUM WITH VITAMIN D [Concomitant]

REACTIONS (4)
  - LIMB DISCOMFORT [None]
  - RESPIRATORY TRACT INFECTION [None]
  - ARTHRALGIA [None]
  - PAIN IN EXTREMITY [None]
